APPROVED DRUG PRODUCT: LAMOTRIGINE
Active Ingredient: LAMOTRIGINE
Strength: 150MG
Dosage Form/Route: TABLET;ORAL
Application: A090607 | Product #003 | TE Code: AB
Applicant: ALEMBIC PHARMACEUTICALS LTD
Approved: Jan 13, 2011 | RLD: No | RS: No | Type: RX